FAERS Safety Report 4289934-9 (Version None)
Quarter: 2004Q1

REPORT INFORMATION
  Report Type: 
  Country: None (occurrence: None)
  Receive Date: 20040209
  Receipt Date: 20040129
  Transmission Date: 20041129
  Serious: Yes (Other)
  Sender: FDA-Public Use
  Company Number: 200410212JP

PATIENT
  Sex: Female

DRUGS (1)
  1. ARAVA [Suspect]
     Indication: RHEUMATOID ARTHRITIS
     Route: 048
     Dates: start: 20040115, end: 20040129

REACTIONS (3)
  - ASPARTATE AMINOTRANSFERASE INCREASED [None]
  - PANCYTOPENIA [None]
  - RASH [None]
